FAERS Safety Report 10038235 (Version 1)
Quarter: 2014Q1

REPORT INFORMATION
  Report Type: Spontaneous
  Country: US (occurrence: None)
  Receive Date: 20140306
  Receipt Date: 20140306
  Transmission Date: 20141002
  Serious: Yes (Hospitalization)
  Sender: FDA-Public Use
  Company Number: 163-21880-13105652

PATIENT
  Age: 74 Year
  Sex: Male
  Weight: 97.98 kg

DRUGS (1)
  1. REVLIMID (LENALIDOMIDE) (25 MILLIGRAM, CAPSULES) [Suspect]
     Indication: PLASMA CELL MYELOMA
     Dosage: 21 IN 21 D
     Route: 048
     Dates: start: 20120509, end: 20120620

REACTIONS (5)
  - Renal failure acute [None]
  - Transaminases increased [None]
  - Pancytopenia [None]
  - Drug ineffective [None]
  - Plasma cell myeloma [None]
